FAERS Safety Report 21611744 (Version 1)
Quarter: 2022Q4

REPORT INFORMATION
  Report Type: Spontaneous
  Country: DE (occurrence: DE)
  Receive Date: 20221117
  Receipt Date: 20221117
  Transmission Date: 20230113
  Serious: Yes (Hospitalization, Other)
  Sender: FDA-Public Use
  Company Number: None

PATIENT
  Age: 69 Year
  Sex: Male

DRUGS (19)
  1. DOXAZOSIN [Suspect]
     Active Substance: DOXAZOSIN MESYLATE
     Indication: Product used for unknown indication
     Dosage: STRENGTH: 4 MG, 4 MG, 0-0-0.5-0
  2. FLUOROURACIL [Suspect]
     Active Substance: FLUOROURACIL
     Indication: Product used for unknown indication
     Dosage: AS NECESSARY, ACCORDING TO SCHEME
  3. IRINOTECAN [Suspect]
     Active Substance: IRINOTECAN
     Indication: Product used for unknown indication
     Dosage: AS NECESSARY, ACCORDING TO SCHEME
  4. OXALIPLATIN [Suspect]
     Active Substance: OXALIPLATIN
     Indication: Product used for unknown indication
     Dosage: AS NECESSARY, ACCORDING TO SCHEME
  5. LEUCOVORIN [Suspect]
     Active Substance: LEUCOVORIN
     Indication: Product used for unknown indication
     Dosage: AS NECESSARY, ACCORDING TO SCHEME
  6. METOPROLOL [Suspect]
     Active Substance: METOPROLOL
     Indication: Product used for unknown indication
     Dosage: 47.5 MG, 0.5-0-0.5-0
  7. ASPIRIN [Concomitant]
     Active Substance: ASPIRIN
     Dosage: 100 MG, 0-1-0-0
  8. BECLOMETHASONE DIPROPIONATE [Concomitant]
     Active Substance: BECLOMETHASONE DIPROPIONATE
     Dosage: 0.05 MG, 1-0-0-0
  9. FOLACID [Concomitant]
     Dosage: 5 MG, 1-0-0-0
  10. INSULIN LISPRO [Concomitant]
     Active Substance: INSULIN LISPRO
     Dosage: 100, NK IU, ACCORDING TO SCHEME LIPROLOG 100 UNITS/ML SOLUTION FOR INJECTION, AS NECESSARY
  11. LEVEMIR [Concomitant]
     Active Substance: INSULIN DETEMIR
     Dosage: NK IU, 0-0-18-0
  12. LOPERAMIDE [Concomitant]
     Active Substance: LOPERAMIDE
     Dosage: 2 MG, 8X
  13. METAMIZOLE [Concomitant]
     Active Substance: METAMIZOLE
     Dosage: 500 MG, 6X
  14. METOCLOPRAMIDE [Concomitant]
     Active Substance: METOCLOPRAMIDE
     Dosage: 10 MG, 4X
  15. OLODATEROL\TIOTROPIUM [Concomitant]
     Active Substance: OLODATEROL\TIOTROPIUM
     Dosage: 2/5 MG, 1-0-0-0
  16. ONDANSETRON [Concomitant]
     Active Substance: ONDANSETRON
     Dosage: 8 MG, 3X
  17. PANTOPRAZOLE [Concomitant]
     Active Substance: PANTOPRAZOLE
     Dosage: STRENGTH: 40 MG, 40 MG, 1-0-0-0
  18. RAMIPRIL [Concomitant]
     Active Substance: RAMIPRIL
     Dosage: STRENGTH: 2.5 MG, 2.5 MG, 0-0-1-0
  19. SIMVASTATIN [Concomitant]
     Active Substance: SIMVASTATIN
     Dosage: STRENGTH: 20 MG, 20 MG, 0-0-1-0

REACTIONS (5)
  - Hypotension [Unknown]
  - Dehydration [Unknown]
  - Syncope [Unknown]
  - Diarrhoea [Unknown]
  - Circulatory collapse [Unknown]

NARRATIVE: CASE EVENT DATE: 20190712
